FAERS Safety Report 16454625 (Version 1)
Quarter: 2019Q2

REPORT INFORMATION
  Report Type: Report from Study
  Country: CA (occurrence: CA)
  Receive Date: 20190619
  Receipt Date: 20190619
  Transmission Date: 20190711
  Serious: No
  Sender: FDA-Public Use
  Company Number: CA-BEH-2019101176

PATIENT
  Age: 48 Year
  Sex: Female

DRUGS (3)
  1. HIZENTRA [Suspect]
     Active Substance: HUMAN IMMUNOGLOBULIN G
     Dosage: 16 G, TOT
     Route: 058
     Dates: start: 2019, end: 2019
  2. HIZENTRA [Suspect]
     Active Substance: HUMAN IMMUNOGLOBULIN G
     Indication: MULTIFOCAL MOTOR NEUROPATHY
     Dosage: 16 G, QW
     Route: 058
     Dates: start: 20190319
  3. HIZENTRA [Suspect]
     Active Substance: HUMAN IMMUNOGLOBULIN G
     Dosage: 16 G, TOT
     Route: 058
     Dates: start: 201904, end: 201904

REACTIONS (10)
  - Tremor [Unknown]
  - Muscular weakness [Recovering/Resolving]
  - Fatigue [Recovered/Resolved with Sequelae]
  - Dry skin [Unknown]
  - Erythema [Recovered/Resolved]
  - Product use in unapproved indication [Recovered/Resolved with Sequelae]
  - Peripheral swelling [Recovered/Resolved with Sequelae]
  - Localised oedema [Recovered/Resolved]
  - Fine motor skill dysfunction [Unknown]
  - Muscular weakness [Recovered/Resolved with Sequelae]

NARRATIVE: CASE EVENT DATE: 2019
